FAERS Safety Report 4298699-6 (Version None)
Quarter: 2004Q1

REPORT INFORMATION
  Report Type: 
  Country: None (occurrence: None)
  Receive Date: 20040126
  Receipt Date: 20031021
  Transmission Date: 20041129
  Serious: No
  Sender: FDA-Public Use
  Company Number: USA031050482

PATIENT
  Age: 59 Year
  Sex: Female
  Weight: 62 kg

DRUGS (10)
  1. STRATTERA [Suspect]
     Dosage: 60 MG/IN THE EVENING
     Dates: start: 20030901
  2. CONCERTA [Concomitant]
  3. LEVOTHROID [Concomitant]
  4. PREMARIN [Concomitant]
  5. CALCIUM [Concomitant]
  6. MULTIVITAMIN [Concomitant]
  7. ZINC SULFATE [Concomitant]
  8. FOLIC ACID [Concomitant]
  9. LUKASM (MONTELUKAST SODIUM) [Concomitant]
  10. ALLERGY SHOTS [Concomitant]

REACTIONS (2)
  - MEMORY IMPAIRMENT [None]
  - SOMNOLENCE [None]
